FAERS Safety Report 7815034-4 (Version None)
Quarter: 2011Q4

REPORT INFORMATION
  Report Type: 
  Country: None (occurrence: None)
  Receive Date: 20111013
  Receipt Date: 20111013
  Transmission Date: 20120403
  Serious: No
  Sender: FDA-Public Use
  Company Number: None

PATIENT
  Sex: Female

DRUGS (1)
  1. FOSAMAX [Suspect]
     Dosage: 1 TAB ONE A WEEK
     Dates: start: 20090511, end: 20110307

REACTIONS (3)
  - BONE PAIN [None]
  - MYALGIA [None]
  - PHARYNGEAL HAEMORRHAGE [None]
